FAERS Safety Report 25279412 (Version 1)
Quarter: 2025Q2

REPORT INFORMATION
  Report Type: Spontaneous
  Country: CN (occurrence: CN)
  Receive Date: 20250507
  Receipt Date: 20250507
  Transmission Date: 20250716
  Serious: Yes (Other)
  Sender: PFIZER
  Company Number: CN-PFIZER INC-PV202500052832

PATIENT
  Age: 36 Year
  Sex: Male

DRUGS (8)
  1. CYTARABINE [Suspect]
     Active Substance: CYTARABINE
     Indication: Acute myeloid leukaemia
     Dosage: 3750 MG, 2X/DAY
     Route: 041
     Dates: start: 20241227, end: 20241229
  2. CYTARABINE [Suspect]
     Active Substance: CYTARABINE
     Indication: Retinal haemorrhage
  3. CYTARABINE [Suspect]
     Active Substance: CYTARABINE
     Indication: Refraction disorder
  4. CYTARABINE [Suspect]
     Active Substance: CYTARABINE
     Indication: Malnutrition
  5. SODIUM CHLORIDE [Suspect]
     Active Substance: SODIUM CHLORIDE
     Indication: Acute myeloid leukaemia
     Dosage: 250 ML, 2X/DAY
     Route: 041
     Dates: start: 20241227, end: 20241229
  6. SODIUM CHLORIDE [Suspect]
     Active Substance: SODIUM CHLORIDE
     Indication: Retinal haemorrhage
  7. SODIUM CHLORIDE [Suspect]
     Active Substance: SODIUM CHLORIDE
     Indication: Refraction disorder
  8. SODIUM CHLORIDE [Suspect]
     Active Substance: SODIUM CHLORIDE
     Indication: Malnutrition

REACTIONS (1)
  - Palmar-plantar erythrodysaesthesia syndrome [Recovering/Resolving]

NARRATIVE: CASE EVENT DATE: 20241230
